FAERS Safety Report 22801598 (Version 3)
Quarter: 2023Q4

REPORT INFORMATION
  Report Type: Spontaneous
  Country: EG (occurrence: EG)
  Receive Date: 20230809
  Receipt Date: 20231006
  Transmission Date: 20240110
  Serious: Yes (Other)
  Sender: FDA-Public Use
  Company Number: EG-NOVOPROD-1098752

PATIENT
  Age: 67 Year
  Sex: Female
  Weight: 82 kg

DRUGS (11)
  1. INSULIN HUMAN [Suspect]
     Active Substance: INSULIN HUMAN
     Dosage: 60 IU, QD (40U IN MORNING AND 20 U AT NIGHT)
     Route: 058
  2. INSULIN HUMAN [Suspect]
     Active Substance: INSULIN HUMAN
     Indication: Type 2 diabetes mellitus
     Dosage: UNK
     Route: 058
  3. PENTAL [BENZALKONIUM CHLORIDE;MAFENIDE;SULFANILAMIDE;ZINC OXIDE] [Concomitant]
     Indication: Capillary disorder
     Dosage: 1 TABLET MORNING AND 1 TABLET NIGHT
     Route: 048
  4. NAFRONYL [Concomitant]
     Active Substance: NAFRONYL
     Indication: Capillary disorder
     Dosage: 1 TABLET MORNING AND 1 TABLET NIGHT
     Route: 048
  5. NITROMACK [Concomitant]
     Indication: Cardiac disorder
     Dosage: 1 TABLET MORNING AND 1 TABLET NIGHT
     Route: 048
  6. ENALAPRIL [Concomitant]
     Active Substance: ENALAPRIL
     Indication: Hypertension
     Dosage: 20 IU, QD
     Route: 048
  7. ENALAPRIL [Concomitant]
     Active Substance: ENALAPRIL
     Dosage: 10 IU, BID
     Route: 048
  8. ENALAPRIL MALEATE [Concomitant]
     Active Substance: ENALAPRIL MALEATE
     Indication: Cardiac disorder
     Dosage: 1 TABLET AT NIGHT
     Route: 048
  9. BENFOTIAMINE\CYANOCOBALAMIN\PYRIDOXINE HYDROCHLORIDE [Concomitant]
     Active Substance: BENFOTIAMINE\CYANOCOBALAMIN\PYRIDOXINE HYDROCHLORIDE
     Dosage: ONCE DAILY
     Route: 048
  10. ATOR 10 [Concomitant]
     Indication: Blood cholesterol
     Dosage: 1 TABLET AT NIGHT
     Route: 048
  11. NEUROVIT [CYANOCOBALAMIN;IBUPROFEN;PYRIDOXINE HYDROCHLORIDE;THIAMINE H [Concomitant]
     Dosage: UNK
     Route: 048

REACTIONS (2)
  - Vascular occlusion [Not Recovered/Not Resolved]
  - Vision blurred [Not Recovered/Not Resolved]
